FAERS Safety Report 4611834-2 (Version None)
Quarter: 2005Q2

REPORT INFORMATION
  Report Type: 
  Country: None (occurrence: None)
  Receive Date: 20050308
  Receipt Date: 20050112
  Transmission Date: 20051028
  Serious: Yes (Other)
  Sender: FDA-Public Use
  Company Number: 2005UW00569

PATIENT
  Age: 65 Year
  Sex: Female
  Weight: 156 kg

DRUGS (2)
  1. CRESTOR [Suspect]
     Indication: BLOOD CHOLESTEROL INCREASED
     Dosage: 10 MG QD PO
     Route: 048
  2. METOPROLOL TARTRATE [Concomitant]

REACTIONS (2)
  - MYALGIA [None]
  - PYREXIA [None]
